FAERS Safety Report 21374774 (Version 1)
Quarter: 2022Q3

REPORT INFORMATION
  Report Type: Spontaneous
  Country: NL (occurrence: NL)
  Receive Date: 20220926
  Receipt Date: 20220926
  Transmission Date: 20221027
  Serious: Yes (Other)
  Sender: FDA-Public Use
  Company Number: NL-AMGEN-NLDSP2022161976

PATIENT

DRUGS (2)
  1. APREMILAST [Suspect]
     Active Substance: APREMILAST
     Indication: Psoriasis
     Dosage: UNK
     Route: 065
  2. ADALIMUMAB [Suspect]
     Active Substance: ADALIMUMAB
     Indication: Psoriasis
     Dosage: UNK
     Route: 065

REACTIONS (11)
  - Infection [Unknown]
  - Musculoskeletal disorder [Unknown]
  - Laboratory test abnormal [Unknown]
  - Neoplasm [Unknown]
  - General physical health deterioration [Unknown]
  - Gastrointestinal disorder [Unknown]
  - Cardiovascular disorder [Unknown]
  - Adverse drug reaction [Unknown]
  - Adverse event [Unknown]
  - Skin disorder [Unknown]
  - Drug ineffective [Unknown]
